FAERS Safety Report 24043122 (Version 1)
Quarter: 2024Q3

REPORT INFORMATION
  Report Type: Spontaneous
  Country: US (occurrence: US)
  Receive Date: 20240702
  Receipt Date: 20240702
  Transmission Date: 20241017
  Serious: No
  Sender: MERCK
  Company Number: US-009507513-2406USA004232

PATIENT
  Age: 77 Year
  Sex: Male

DRUGS (2)
  1. NOXAFIL [Interacting]
     Active Substance: POSACONAZOLE
     Indication: Aspergillus infection
     Route: 048
  2. IVOSIDENIB [Interacting]
     Active Substance: IVOSIDENIB
     Indication: Acute myeloid leukaemia
     Route: 048

REACTIONS (2)
  - Drug interaction [Recovered/Resolved]
  - Alanine aminotransferase increased [Unknown]
